FAERS Safety Report 4636877-4 (Version None)
Quarter: 2005Q2

REPORT INFORMATION
  Report Type: 
  Country: None (occurrence: None)
  Receive Date: 20050413
  Receipt Date: 20050413
  Transmission Date: 20051028
  Serious: No
  Sender: FDA-Public Use
  Company Number: None

PATIENT
  Age: 89 Year
  Sex: Male
  Weight: 97.5234 kg

DRUGS (5)
  1. FLOMAX [Suspect]
     Indication: BENIGN PROSTATIC HYPERPLASIA
     Dosage: ONE   QHS    ORAL
     Route: 048
     Dates: start: 20000101, end: 20050430
  2. ASPIRIN [Concomitant]
  3. PROSCAR [Concomitant]
  4. CELEBREX [Concomitant]
  5. FUROSEMIDE [Concomitant]

REACTIONS (3)
  - CATARACT OPERATION [None]
  - IRIDOCELE [None]
  - PROCEDURAL COMPLICATION [None]
